FAERS Safety Report 5459010-8 (Version None)
Quarter: 2007Q3

REPORT INFORMATION
  Report Type: 
  Country: None (occurrence: None)
  Receive Date: 20070919
  Receipt Date: 20070916
  Transmission Date: 20080115
  Serious: Yes (Hospitalization, Other)
  Sender: FDA-Public Use
  Company Number: US-ASTRAZENECA-2006UW07032

PATIENT
  Age: 604 Month
  Sex: Male
  Weight: 109.1 kg

DRUGS (3)
  1. SEROQUEL [Suspect]
     Indication: ANXIETY
     Route: 048
     Dates: start: 20020823, end: 20060101
  2. BUSPAR [Concomitant]
     Dates: start: 20030101
  3. LAMICTAL [Concomitant]
     Dates: start: 20030101

REACTIONS (5)
  - BASEDOW'S DISEASE [None]
  - GALLBLADDER OPERATION [None]
  - PANCREATIC INSUFFICIENCY [None]
  - TYPE 2 DIABETES MELLITUS [None]
  - WEIGHT INCREASED [None]
